FAERS Safety Report 9234634 (Version 2)
Quarter: 2013Q2

REPORT INFORMATION
  Report Type: Spontaneous
  Country: IT (occurrence: IT)
  Receive Date: 20130416
  Receipt Date: 20130501
  Transmission Date: 20140414
  Serious: Yes (Life-Threatening, Hospitalization)
  Sender: FDA-Public Use
  Company Number: IT-ASTRAZENECA-2013SE24984

PATIENT
  Age: 17253 Day
  Sex: Male

DRUGS (3)
  1. SEROQUEL [Suspect]
     Indication: BIPOLAR DISORDER
     Route: 048
     Dates: start: 2012
  2. SEROQUEL [Suspect]
     Indication: BIPOLAR DISORDER
     Route: 048
     Dates: start: 20120301, end: 20130311
  3. SEROQUEL [Suspect]
     Indication: BIPOLAR DISORDER
     Dosage: 32 DF TOTAL
     Route: 048
     Dates: start: 20130311, end: 20130311

REACTIONS (5)
  - Suicide attempt [Recovered/Resolved]
  - Coma [Recovered/Resolved]
  - Tachycardia [Recovered/Resolved]
  - Sedation [Unknown]
  - Intentional drug misuse [Unknown]
